FAERS Safety Report 19872622 (Version 1)
Quarter: 2021Q3

REPORT INFORMATION
  Report Type: Spontaneous
  Country: US (occurrence: US)
  Receive Date: 20210923
  Receipt Date: 20210923
  Transmission Date: 20211014
  Serious: No
  Sender: FDA-Public Use
  Company Number: US-CELGENEUS-USA-20210903188

PATIENT
  Age: 55 Year
  Sex: Female

DRUGS (4)
  1. ZEPOSIA [Suspect]
     Active Substance: OZANIMOD HYDROCHLORIDE
     Indication: MULTIPLE SCLEROSIS
     Dosage: .92 MILLIGRAM
     Route: 048
     Dates: start: 20201218
  2. ZEPOSIA [Suspect]
     Active Substance: OZANIMOD HYDROCHLORIDE
     Route: 048
     Dates: start: 20210305
  3. COVID VACCINE PFIZER [Concomitant]
     Route: 065
     Dates: start: 20210813
  4. COVID VACCINE PFIZER [Concomitant]
     Indication: COVID-19
     Route: 065
     Dates: start: 20210723

REACTIONS (2)
  - White blood cell count decreased [Recovered/Resolved]
  - Herpes zoster [Recovered/Resolved]

NARRATIVE: CASE EVENT DATE: 20210219
